FAERS Safety Report 6537035-9 (Version None)
Quarter: 2010Q1

REPORT INFORMATION
  Report Type: 
  Country: None (occurrence: None)
  Receive Date: 20100114
  Receipt Date: 20100111
  Transmission Date: 20100710
  Serious: Yes (Other)
  Sender: FDA-Public Use
  Company Number: US-ASTRAZENECA-2009SE20943

PATIENT
  Age: 626 Month
  Sex: Female
  Weight: 95.7 kg

DRUGS (7)
  1. SEROQUEL [Suspect]
     Indication: SLEEP DISORDER
     Route: 048
     Dates: start: 20060101
  2. SEROQUEL [Suspect]
     Indication: BIPOLAR DISORDER
     Route: 048
     Dates: start: 20060101
  3. AMITRIPTYLINE [Concomitant]
     Dates: start: 20070821
  4. METOPROLOL [Concomitant]
     Dates: start: 20070821
  5. TRAZODONE HCL [Concomitant]
     Dates: start: 20071109
  6. GABAPENTIN [Concomitant]
     Dates: start: 20080205
  7. AVANDIA [Concomitant]
     Dates: start: 20090422

REACTIONS (2)
  - HERNIA [None]
  - TYPE 2 DIABETES MELLITUS [None]
